FAERS Safety Report 12174514 (Version 3)
Quarter: 2023Q1

REPORT INFORMATION
  Report Type: Spontaneous
  Country: IT (occurrence: IT)
  Receive Date: 20160312
  Receipt Date: 20230302
  Transmission Date: 20230418
  Serious: Yes (Hospitalization)
  Sender: FDA-Public Use
  Company Number: IT-AUROBINDO-AUR-APL-2016-03249

PATIENT
  Age: 25 Year
  Sex: Female

DRUGS (3)
  1. ALPRAZOLAM [Suspect]
     Active Substance: ALPRAZOLAM
     Indication: Drug abuse
     Dosage: 2 MG, TOTAL
     Route: 048
     Dates: start: 20151229, end: 20151229
  2. OLANZAPINE [Suspect]
     Active Substance: OLANZAPINE
     Indication: Drug abuse
     Dosage: 5 MG, TOTAL
     Route: 048
     Dates: start: 20151229, end: 20151229
  3. FEVARIN [Suspect]
     Active Substance: FLUVOXAMINE MALEATE
     Indication: Drug abuse
     Dosage: 300 MG, TOTAL
     Route: 048
     Dates: start: 20151229, end: 20151229

REACTIONS (3)
  - Intentional self-injury [Recovering/Resolving]
  - Sopor [Recovering/Resolving]
  - Drug abuse [Recovering/Resolving]

NARRATIVE: CASE EVENT DATE: 20151229
